FAERS Safety Report 6696752-0 (Version None)
Quarter: 2010Q2

REPORT INFORMATION
  Report Type: 
  Country: None (occurrence: None)
  Receive Date: 20100426
  Receipt Date: 20100416
  Transmission Date: 20101027
  Serious: Yes (Disabling)
  Sender: FDA-Public Use
  Company Number: JP-ELI_LILLY_AND_COMPANY-JP201004005744

PATIENT
  Age: 58 Year
  Sex: Male
  Weight: 52 kg

DRUGS (14)
  1. PEMETREXED [Suspect]
     Indication: LUNG ADENOCARCINOMA RECURRENT
     Dosage: 790 MG, OTHER
     Route: 042
     Dates: start: 20090821, end: 20090915
  2. PANVITAN [Concomitant]
     Dosage: 1 G, DAILY (1/D)
     Route: 048
     Dates: start: 20090811, end: 20090917
  3. METHYCOBAL [Concomitant]
     Dosage: 1 MG, OTHER
     Route: 030
     Dates: start: 20090811, end: 20090811
  4. DECADRON /00016002/ [Concomitant]
     Dosage: UNK, SAME DAY AS PEMETREXED
     Route: 042
     Dates: start: 20090821, end: 20090915
  5. PRIMPERAN /00041901/ [Concomitant]
     Dosage: UNK, SAME DAY AS PEMETREXED
     Route: 042
     Dates: start: 20090821, end: 20090915
  6. GLUCOSE [Concomitant]
     Dosage: UNK, SAME DAY AS PEMETREXED
     Route: 042
     Dates: start: 20090821, end: 20090915
  7. ISOTONIC SOLUTIONS [Concomitant]
     Dosage: UNK, SAME DAY AS PEMETREXED
     Route: 042
     Dates: start: 20090821, end: 20090915
  8. MAGMITT [Concomitant]
     Indication: CONSTIPATION
     Route: 048
     Dates: end: 20090917
  9. LENDORMIN [Concomitant]
     Indication: INSOMNIA
     Route: 048
  10. LOXONIN [Concomitant]
     Indication: ABDOMINAL PAIN UPPER
     Dates: start: 20090823
  11. LAXOBERON [Concomitant]
     Indication: CONSTIPATION
     Route: 048
     Dates: start: 20090823, end: 20090823
  12. ALMETA [Concomitant]
     Indication: RASH
     Route: 058
     Dates: start: 20090825, end: 20090825
  13. MYSER [Concomitant]
     Indication: RASH
     Route: 058
     Dates: start: 20090825, end: 20090825
  14. PYRINAZIN [Concomitant]
     Indication: PYREXIA
     Route: 048
     Dates: start: 20090826, end: 20090829

REACTIONS (1)
  - CEREBRAL INFARCTION [None]
